FAERS Safety Report 13637548 (Version 1)
Quarter: 2017Q2

REPORT INFORMATION
  Report Type: Spontaneous
  Country: US (occurrence: US)
  Receive Date: 20170608
  Receipt Date: 20170608
  Transmission Date: 20170830
  Serious: Yes (Disabling)
  Sender: FDA-Public Use
  Company Number: None

PATIENT
  Sex: Female

DRUGS (2)
  1. TOBRAMYCIN 300MG/5ML NORVARTIS [Suspect]
     Active Substance: TOBRAMYCIN
     Indication: BRONCHIECTASIS
     Dosage: 5ML (300MG), TWICE A DAY FOR 28 DAYS ON + 28 DAYS OFF
     Route: 055
     Dates: start: 20170317, end: 20170607
  2. TOBRAMYCIN 300MG/5ML NORVARTIS [Suspect]
     Active Substance: TOBRAMYCIN
     Indication: BACTERIAL INFECTION
     Dosage: 5ML (300MG), TWICE A DAY FOR 28 DAYS ON + 28 DAYS OFF
     Route: 055
     Dates: start: 20170317, end: 20170607

REACTIONS (2)
  - Deafness [None]
  - Therapy cessation [None]
